FAERS Safety Report 5639234-7 (Version None)
Quarter: 2008Q1

REPORT INFORMATION
  Report Type: 
  Country: None (occurrence: None)
  Receive Date: 20080226
  Receipt Date: 20080212
  Transmission Date: 20080703
  Serious: Yes (Other)
  Sender: FDA-Public Use
  Company Number: TR-ELI_LILLY_AND_COMPANY-TR200802004505

PATIENT

DRUGS (3)
  1. HUMULIN R [Suspect]
     Indication: GESTATIONAL DIABETES
     Dosage: 14 IU, 2/D
     Route: 064
  2. HUMULIN R [Suspect]
     Dosage: 12 IU, EACH EVENING
     Route: 064
  3. HUMULIN N [Suspect]
     Indication: GESTATIONAL DIABETES
     Route: 064

REACTIONS (2)
  - DRUG EXPOSURE DURING PREGNANCY [None]
  - PREMATURE BABY [None]
